FAERS Safety Report 24835703 (Version 1)
Quarter: 2025Q1

REPORT INFORMATION
  Report Type: Spontaneous
  Country: US (occurrence: US)
  Receive Date: 20250113
  Receipt Date: 20250113
  Transmission Date: 20250408
  Serious: Yes (Other)
  Sender: COOPERSURGICAL
  Company Number: US-COOPERSURGICAL, INC.-2025CPS000041

PATIENT
  Sex: Female
  Weight: 68.027 kg

DRUGS (1)
  1. PARAGARD T 380A [Suspect]
     Active Substance: COPPER
     Indication: Contraception
     Route: 015
     Dates: start: 20200730, end: 20211123

REACTIONS (4)
  - Reproductive complication associated with device [Not Recovered/Not Resolved]
  - Infertility female [Not Recovered/Not Resolved]
  - Ovarian failure [Not Recovered/Not Resolved]
  - Premature menopause [Not Recovered/Not Resolved]

NARRATIVE: CASE EVENT DATE: 20210101
